FAERS Safety Report 6612100-6 (Version None)
Quarter: 2010Q1

REPORT INFORMATION
  Report Type: 
  Country: None (occurrence: None)
  Receive Date: 20100303
  Receipt Date: 20100225
  Transmission Date: 20100710
  Serious: Yes (Death, Other)
  Sender: FDA-Public Use
  Company Number: JP-ROCHE-673045

PATIENT
  Sex: Female
  Weight: 43 kg

DRUGS (41)
  1. TOCILIZUMAB [Suspect]
     Indication: RHEUMATOID ARTHRITIS
     Route: 041
     Dates: start: 20080530, end: 20080530
  2. TOCILIZUMAB [Suspect]
     Route: 041
     Dates: start: 20080704, end: 20080704
  3. TOCILIZUMAB [Suspect]
     Route: 041
     Dates: start: 20080801, end: 20080801
  4. TOCILIZUMAB [Suspect]
     Route: 041
     Dates: start: 20080822, end: 20080822
  5. TOCILIZUMAB [Suspect]
     Route: 041
     Dates: start: 20080925, end: 20080925
  6. TOCILIZUMAB [Suspect]
     Route: 041
     Dates: start: 20081024, end: 20081024
  7. TOCILIZUMAB [Suspect]
     Route: 041
     Dates: start: 20081121, end: 20081121
  8. TOCILIZUMAB [Suspect]
     Route: 041
     Dates: start: 20081212, end: 20081212
  9. TOCILIZUMAB [Suspect]
     Route: 041
     Dates: start: 20090101, end: 20090101
  10. TOCILIZUMAB [Suspect]
     Route: 041
     Dates: start: 20090326, end: 20090326
  11. TOCILIZUMAB [Suspect]
     Route: 041
     Dates: start: 20090424, end: 20090424
  12. TOCILIZUMAB [Suspect]
     Route: 041
     Dates: start: 20090618, end: 20090618
  13. TOCILIZUMAB [Suspect]
     Route: 041
     Dates: start: 20090716, end: 20090716
  14. TOCILIZUMAB [Suspect]
     Route: 041
     Dates: start: 20090813, end: 20090813
  15. TOCILIZUMAB [Suspect]
     Route: 041
     Dates: start: 20090924, end: 20090924
  16. TOCILIZUMAB [Suspect]
     Route: 041
     Dates: start: 20091022, end: 20091022
  17. PREDONINE [Concomitant]
     Dosage: DOSE FORM: PERORAL AGENT
     Route: 048
     Dates: end: 20081028
  18. PREDONINE [Concomitant]
     Route: 048
     Dates: start: 20081029, end: 20090101
  19. PREDONINE [Concomitant]
     Route: 048
     Dates: start: 20090101, end: 20091126
  20. METOLATE [Concomitant]
     Route: 048
     Dates: end: 20090101
  21. CYTOTEC [Concomitant]
     Route: 048
     Dates: end: 20090101
  22. MAGLAX [Concomitant]
     Dosage: FORM: PERORAL AGENT
     Route: 048
     Dates: end: 20090101
  23. PARIET [Concomitant]
     Route: 048
     Dates: end: 20091126
  24. BUP-4 [Concomitant]
     Dosage: FORM: PERORAL AGENT
     Route: 048
     Dates: end: 20090101
  25. MOHRUS [Concomitant]
     Dosage: FORM: TAPE
     Route: 061
     Dates: end: 20090101
  26. FELBINAC [Concomitant]
     Dosage: FORM: TAPE. DRUG REPORTED AS:SELTOUCH
     Route: 061
     Dates: end: 20090101
  27. KLARICID [Concomitant]
     Dosage: FORM: PERORAL AGENT
     Route: 048
     Dates: end: 20090101
  28. BENET [Concomitant]
     Route: 048
     Dates: end: 20091126
  29. FOLIAMIN [Concomitant]
     Dosage: FORM: PERORAL AGENT
     Route: 048
     Dates: end: 20090101
  30. HIRUDOID [Concomitant]
     Route: 061
     Dates: end: 20090101
  31. KETOPROFEN [Concomitant]
     Dosage: DRUG REPORTED:SECTOR:LOTION
     Route: 061
     Dates: end: 20090101
  32. MEVALOTIN [Concomitant]
     Dosage: FORM: PERORAL AGENT
     Route: 048
     Dates: end: 20090101
  33. GLYCORAN [Concomitant]
     Route: 048
     Dates: end: 20090101
  34. PREDNISOLONE [Concomitant]
     Route: 048
     Dates: start: 20081029, end: 20090101
  35. BASEN [Concomitant]
     Route: 048
     Dates: end: 20090101
  36. PREDNISOLONE [Concomitant]
     Dosage: DRUG REPORTED AS:PREDOHAN
     Route: 048
     Dates: start: 20090101, end: 20091008
  37. AZULFIDINE [Concomitant]
     Route: 048
     Dates: start: 20090101, end: 20091008
  38. CELCOX [Concomitant]
     Dosage: DRUG: CERECOX
     Route: 048
     Dates: start: 20090101, end: 20091126
  39. LAC B [Concomitant]
     Dosage: FORM: PERORAL AGENT
     Route: 048
     Dates: start: 20090101, end: 20091008
  40. GASLON N [Concomitant]
     Dosage: FORM: PERORAL AGENT
     Route: 048
     Dates: start: 20090101, end: 20091008
  41. SOSEGON [Concomitant]
     Route: 048
     Dates: start: 20090101, end: 20091126

REACTIONS (3)
  - ACUTE RESPIRATORY DISTRESS SYNDROME [None]
  - MULTI-ORGAN FAILURE [None]
  - PNEUMONIA [None]
